FAERS Safety Report 8041777-6 (Version None)
Quarter: 2012Q1

REPORT INFORMATION
  Report Type: 
  Country: None (occurrence: None)
  Receive Date: 20120112
  Receipt Date: 20120109
  Transmission Date: 20120608
  Serious: Yes (Hospitalization)
  Sender: FDA-Public Use
  Company Number: US-JNJFOC-20120103249

PATIENT
  Sex: Male
  Weight: 94.35 kg

DRUGS (3)
  1. USTEKINUMAB [Suspect]
     Route: 058
     Dates: start: 20031201, end: 20040401
  2. USTEKINUMAB [Suspect]
     Indication: PSORIASIS
     Route: 058
     Dates: start: 20100701
  3. ETANERCEPT [Suspect]
     Indication: PRODUCT USED FOR UNKNOWN INDICATION
     Dates: start: 20100501, end: 20100601

REACTIONS (1)
  - LARYNGEAL CANCER STAGE III [None]
